FAERS Safety Report 5772858-5 (Version None)
Quarter: 2008Q2

REPORT INFORMATION
  Report Type: 
  Country: None (occurrence: None)
  Receive Date: 20080613
  Receipt Date: 20080605
  Transmission Date: 20081010
  Serious: Yes (Disabling)
  Sender: FDA-Public Use
  Company Number: FR-PFIZER INC-2008038823

PATIENT
  Sex: Male
  Weight: 75 kg

DRUGS (7)
  1. TAHOR [Suspect]
     Indication: HYPERCHOLESTEROLAEMIA
     Route: 048
     Dates: start: 20070201, end: 20080201
  2. THIOCOLCHICOSIDE [Concomitant]
     Indication: MUSCLE CONTRACTURE
  3. THIOCOLCHICOSIDE [Concomitant]
     Indication: BACK PAIN
  4. TANAKAN [Concomitant]
     Indication: ISCHAEMIA
     Dosage: TEXT:9 TABLETS
     Route: 048
  5. NEXIUM [Concomitant]
     Indication: HIATUS HERNIA
     Route: 048
  6. STABLON [Concomitant]
     Indication: MAJOR DEPRESSION
     Dosage: TEXT:6 TABLETS
     Route: 048
  7. KARDEGIC [Concomitant]
     Indication: CAROTID ARTERIOSCLEROSIS
     Route: 048

REACTIONS (2)
  - MYALGIA [None]
  - TENDONITIS [None]
